FAERS Safety Report 7556637-4 (Version None)
Quarter: 2011Q2

REPORT INFORMATION
  Report Type: 
  Country: None (occurrence: None)
  Receive Date: 20110610
  Receipt Date: 20101126
  Transmission Date: 20111010
  Serious: Yes (Hospitalization)
  Sender: FDA-Public Use
  Company Number: 2010-3556

PATIENT
  Age: 12 Year
  Sex: Male

DRUGS (12)
  1. UVESTEROL (UVESTEROL) [Concomitant]
  2. BECONASE [Concomitant]
  3. INCRFLEX (INCRELEX 10MG/ML) (MECASERMIN) (MECASERMIN) [Suspect]
     Indication: INSULIN-LIKE GROWTH FACTOR DECREASED
     Dosage: 0.16 MG/KG (0.08 MG/KG,2 IN 1 D), 0.08 MG/KG (0.04 MQ/KQ,2 IN 1 D),
     Dates: start: 20081216, end: 20081222
  4. INCRFLEX (INCRELEX 10MG/ML) (MECASERMIN) (MECASERMIN) [Suspect]
     Indication: INSULIN-LIKE GROWTH FACTOR DECREASED
     Dosage: 0.16 MG/KG (0.08 MG/KG,2 IN 1 D), 0.08 MG/KG (0.04 MQ/KQ,2 IN 1 D),
     Dates: start: 20081223
  5. INCRFLEX (INCRELEX 10MG/ML) (MECASERMIN) (MECASERMIN) [Suspect]
     Indication: INSULIN-LIKE GROWTH FACTOR DECREASED
     Dosage: 0.16 MG/KG (0.08 MG/KG,2 IN 1 D), 0.08 MG/KG (0.04 MQ/KQ,2 IN 1 D),
     Dates: start: 20081209, end: 20081215
  6. URSODIOL [Concomitant]
  7. OMEPRAZOLE [Concomitant]
  8. PULMOZYME [Concomitant]
  9. RISPERDAL [Concomitant]
  10. URSODIOL [Concomitant]
  11. CREON [Concomitant]
  12. DEMORELLE (ALL OTHER THERAPEUTIC PRODUCTS) [Concomitant]

REACTIONS (1)
  - CONSTIPATION [None]
